FAERS Safety Report 16674018 (Version 1)
Quarter: 2019Q3

REPORT INFORMATION
  Report Type: Spontaneous
  Country: CN (occurrence: CN)
  Receive Date: 20190806
  Receipt Date: 20190806
  Transmission Date: 20191004
  Serious: Yes (Hospitalization)
  Sender: FDA-Public Use
  Company Number: CN-ELI_LILLY_AND_COMPANY-CN201907015104

PATIENT
  Age: 59 Year
  Sex: Female

DRUGS (1)
  1. HUMULIN 70/30 [Suspect]
     Active Substance: INSULIN HUMAN
     Indication: TYPE 2 DIABETES MELLITUS
     Dosage: 15 INTERNATIONAL UNIT, BID
     Route: 058
     Dates: end: 201906

REACTIONS (10)
  - Vision blurred [Unknown]
  - Chest discomfort [Unknown]
  - Feeling abnormal [Unknown]
  - Corneal opacity [Unknown]
  - Coronary artery occlusion [Unknown]
  - Hypertension [Unknown]
  - Eye disorder [Unknown]
  - Hypoglycaemia [Unknown]
  - Blood glucose increased [Unknown]
  - Blood glucose decreased [Unknown]

NARRATIVE: CASE EVENT DATE: 201906
